FAERS Safety Report 8831724 (Version 1)
Quarter: 2012Q4

REPORT INFORMATION
  Report Type: 
  Country: US (occurrence: US)
  Receive Date: 20121009
  Receipt Date: 20121009
  Transmission Date: 20130627
  Serious: No
  Sender: FDA-Public Use
  Company Number: US-VERTEX PHARMACEUTICAL INC.-2012-020471

PATIENT
  Age: 70 Year
  Sex: Male

DRUGS (8)
  1. INCIVEK [Suspect]
     Indication: HEPATITIS C
     Dosage: 750 mg, tid
     Route: 048
     Dates: start: 20120821, end: 20120827
  2. PEGINTERFERON [Suspect]
     Indication: HEPATITIS C
     Dosage: 180 ?g, UNK
     Route: 058
     Dates: start: 20120821, end: 20120827
  3. RIBAVIRIN [Suspect]
     Indication: HEPATITIS C
     Dosage: 600 mg, bid
     Route: 048
     Dates: start: 20120821, end: 20120827
  4. RIBAVIRIN [Suspect]
     Dosage: 600 mg, bid
     Route: 048
     Dates: start: 20120921
  5. IBUPROFEN [Concomitant]
     Dosage: UNK, prn
  6. NORCO [Concomitant]
     Route: 048
  7. PREVACID [Concomitant]
     Dosage: 30 mg, qd
     Route: 048
  8. TRAMADOL [Concomitant]
     Dosage: 100 mg, prn

REACTIONS (2)
  - Rash generalised [Recovered/Resolved]
  - Skin exfoliation [Recovered/Resolved]
